FAERS Safety Report 7232402-2 (Version None)
Quarter: 2011Q1

REPORT INFORMATION
  Report Type: 
  Country: None (occurrence: None)
  Receive Date: 20110105
  Receipt Date: 20101228
  Transmission Date: 20110831
  Serious: Yes (Hospitalization)
  Sender: FDA-Public Use
  Company Number: WAES 1012USA01982

PATIENT
  Age: 78 Year
  Sex: Male
  Weight: 76.6579 kg

DRUGS (12)
  1. METFORMIN [Concomitant]
  2. LASIX [Suspect]
     Dosage: 40 MG/DAILY/PO
     Route: 048
     Dates: start: 20101109
  3. TAB STUDY DRUG (UNSPECIFIED) UNK [Suspect]
     Indication: PROSTATE CANCER
     Dosage: 400 MG/BID/PO
     Route: 048
     Dates: start: 20100302, end: 20101126
  4. GLIPIZIDE [Concomitant]
  5. PRINIVIL [Suspect]
     Dosage: 10 MG/DAILY/PO
     Route: 048
     Dates: start: 20101122
  6. PREDNISONE [Suspect]
     Indication: PROSTATE CANCER
     Dosage: 5 MG/BID/PO
     Route: 048
     Dates: start: 20100302, end: 20101128
  7. NEURONTIN [Concomitant]
  8. FERROUS SULFATE TAB [Concomitant]
  9. K-DUR [Concomitant]
  10. SIMCOR [Concomitant]
  11. ATENOLOL AND CHLORTHALIDONE [Suspect]
     Dosage: PO
     Route: 048
     Dates: start: 20101109
  12. VICODIN [Concomitant]

REACTIONS (9)
  - PERIPHERAL SENSORY NEUROPATHY [None]
  - HYPOTENSION [None]
  - PRESYNCOPE [None]
  - PERIPHERAL VASCULAR DISORDER [None]
  - HYPOKALAEMIA [None]
  - PAIN IN EXTREMITY [None]
  - HAEMOGLOBIN DECREASED [None]
  - BLOOD CREATINE INCREASED [None]
  - DEHYDRATION [None]
